FAERS Safety Report 6272917-7 (Version None)
Quarter: 2009Q3

REPORT INFORMATION
  Report Type: 
  Country: None (occurrence: None)
  Receive Date: 20090717
  Receipt Date: 20090706
  Transmission Date: 20100115
  Serious: Yes (Hospitalization)
  Sender: FDA-Public Use
  Company Number: AU-PFIZER INC-2009236001

PATIENT
  Age: 31 Year

DRUGS (1)
  1. CHAMPIX [Suspect]
     Dosage: UNK
     Route: 048

REACTIONS (11)
  - ANGER [None]
  - ANXIETY [None]
  - CONFUSIONAL STATE [None]
  - CRYING [None]
  - FORMICATION [None]
  - HALLUCINATION [None]
  - HEART RATE INCREASED [None]
  - MOOD SWINGS [None]
  - PARANOIA [None]
  - WEIGHT DECREASED [None]
  - WITHDRAWAL SYNDROME [None]
